FAERS Safety Report 15982520 (Version 1)
Quarter: 2019Q1

REPORT INFORMATION
  Report Type: Spontaneous
  Country: JP (occurrence: JP)
  Receive Date: 20190219
  Receipt Date: 20190219
  Transmission Date: 20190418
  Serious: Yes (Other)
  Sender: FDA-Public Use
  Company Number: JP-DSJP-DSJ-2019-105598

PATIENT

DRUGS (8)
  1. LIXIANA TABLETS [Suspect]
     Active Substance: EDOXABAN TOSYLATE
     Indication: PULMONARY EMBOLISM
  2. WARFARIN POTASSIUM [Concomitant]
     Active Substance: WARFARIN POTASSIUM
     Indication: PULMONARY EMBOLISM
  3. UROKINASE [Concomitant]
     Active Substance: UROKINASE
     Indication: PULMONARY EMBOLISM
     Dosage: UNK
     Route: 065
  4. HEPARIN [Suspect]
     Active Substance: HEPARIN SODIUM
     Indication: DEEP VEIN THROMBOSIS
     Dosage: 10000U/DAY
     Route: 065
  5. HEPARIN [Suspect]
     Active Substance: HEPARIN SODIUM
     Indication: PULMONARY EMBOLISM
     Dosage: UNK
     Route: 065
  6. WARFARIN POTASSIUM [Concomitant]
     Active Substance: WARFARIN POTASSIUM
     Indication: DEEP VEIN THROMBOSIS
     Dosage: UNK
     Route: 048
  7. LIXIANA TABLETS [Suspect]
     Active Substance: EDOXABAN TOSYLATE
     Indication: DEEP VEIN THROMBOSIS
     Dosage: 60MG/DAY
     Route: 065
  8. UROKINASE [Concomitant]
     Active Substance: UROKINASE
     Indication: DEEP VEIN THROMBOSIS
     Dosage: 240000U/DAY
     Route: 065

REACTIONS (1)
  - Heparin-induced thrombocytopenia [Recovered/Resolved]
